FAERS Safety Report 18062593 (Version 3)
Quarter: 2020Q3

REPORT INFORMATION
  Report Type: Spontaneous
  Country: US (occurrence: US)
  Receive Date: 20200723
  Receipt Date: 20200821
  Transmission Date: 20201103
  Serious: Yes (Hospitalization)
  Sender: FDA-Public Use
  Company Number: US-ACTELION-A-NJ2020-207237

PATIENT
  Age: 63 Year
  Sex: Male
  Weight: 126.98 kg

DRUGS (6)
  1. UPTRAVI [Suspect]
     Active Substance: SELEXIPAG
     Dosage: 200 MCG, BID
     Route: 048
     Dates: start: 202006
  2. OXYGEN. [Concomitant]
     Active Substance: OXYGEN
  3. ELIQUIS [Concomitant]
     Active Substance: APIXABAN
  4. SILDENAFIL CITRATE. [Concomitant]
     Active Substance: SILDENAFIL CITRATE
  5. UPTRAVI [Suspect]
     Active Substance: SELEXIPAG
     Indication: PULMONARY ARTERIAL HYPERTENSION
     Dosage: 800 MCG, BID
     Route: 048
  6. UPTRAVI [Suspect]
     Active Substance: SELEXIPAG
     Dosage: 400 MCG, BID
     Route: 048

REACTIONS (15)
  - Blood carbon monoxide increased [Unknown]
  - Hot flush [Unknown]
  - Pain [Unknown]
  - Dyspnoea [Unknown]
  - Burning sensation [Recovered/Resolved]
  - Fluid retention [Unknown]
  - Malaise [Unknown]
  - Pericardial effusion [Not Recovered/Not Resolved]
  - Carbon dioxide increased [Unknown]
  - Pulmonary arterial hypertension [Not Recovered/Not Resolved]
  - Oxygen saturation decreased [Unknown]
  - Pain in jaw [Unknown]
  - Headache [Unknown]
  - Pulmonary oedema [Not Recovered/Not Resolved]
  - Feeling abnormal [Unknown]

NARRATIVE: CASE EVENT DATE: 20200709
